FAERS Safety Report 5363623-1 (Version None)
Quarter: 2007Q2

REPORT INFORMATION
  Report Type: 
  Country: None (occurrence: None)
  Receive Date: 20070620
  Receipt Date: 20070604
  Transmission Date: 20071010
  Serious: Yes (Hospitalization)
  Sender: FDA-Public Use
  Company Number: D0053494A

PATIENT
  Sex: Female

DRUGS (2)
  1. QUILONUM RETARD [Suspect]
     Route: 048
  2. MINERAL TAB [Suspect]
     Route: 065

REACTIONS (2)
  - ANTIPSYCHOTIC DRUG LEVEL BELOW THERAPEUTIC [None]
  - DRUG INTERACTION [None]
